FAERS Safety Report 7733511-1 (Version None)
Quarter: 2011Q3

REPORT INFORMATION
  Report Type: 
  Country: None (occurrence: None)
  Receive Date: 20110907
  Receipt Date: 20110907
  Transmission Date: 20111222
  Serious: Yes (Life-Threatening, Hospitalization, Other)
  Sender: FDA-Public Use
  Company Number: None

PATIENT
  Sex: Male
  Weight: 113.39 kg

DRUGS (1)
  1. ACTOS [Suspect]
     Indication: TYPE 2 DIABETES MELLITUS
     Dosage: 15MG
     Route: 048
     Dates: start: 20100910, end: 20110701

REACTIONS (4)
  - HAEMATURIA [None]
  - PELVIC ABSCESS [None]
  - BLADDER TRANSITIONAL CELL CARCINOMA [None]
  - POST PROCEDURAL COMPLICATION [None]
